FAERS Safety Report 5410893-7 (Version None)
Quarter: 2007Q3

REPORT INFORMATION
  Report Type: 
  Country: None (occurrence: None)
  Receive Date: 20070810
  Receipt Date: 20070730
  Transmission Date: 20080115
  Serious: Yes (Hospitalization)
  Sender: FDA-Public Use
  Company Number: JP-JNJFOC-20061206680

PATIENT
  Sex: Female

DRUGS (27)
  1. REMICADE [Suspect]
     Route: 042
  2. REMICADE [Suspect]
     Route: 042
  3. REMICADE [Suspect]
     Route: 042
  4. REMICADE [Suspect]
     Route: 042
  5. REMICADE [Suspect]
     Route: 042
  6. REMICADE [Suspect]
     Route: 042
  7. REMICADE [Suspect]
     Route: 042
  8. REMICADE [Suspect]
     Route: 042
  9. REMICADE [Suspect]
     Route: 042
  10. REMICADE [Suspect]
     Route: 042
  11. REMICADE [Suspect]
     Route: 042
  12. REMICADE [Suspect]
     Route: 042
  13. REMICADE [Suspect]
     Dosage: 3 MG/KG; 8 INFUSIONS ON UNSPECIFIED DATES
     Route: 042
  14. REMICADE [Suspect]
     Dosage: 3 MG/KG; 8 INFUSIONS ON UNSPECIFIED DATES
     Route: 042
  15. REMICADE [Suspect]
     Dosage: 3 MG/KG; 8 INFUSIONS ON UNSPECIFIED DATES
     Route: 042
  16. REMICADE [Suspect]
     Dosage: 3 MG/KG; 8 INFUSIONS ON UNSPECIFIED DATES
     Route: 042
  17. REMICADE [Suspect]
     Indication: RHEUMATOID ARTHRITIS
     Dosage: 3 MG/KG; 8 INFUSIONS ON UNSPECIFIED DATES
     Route: 042
  18. RHEUMATREX [Suspect]
     Indication: RHEUMATOID ARTHRITIS
     Route: 048
  19. PREDONINE [Suspect]
     Route: 048
  20. PREDONINE [Suspect]
     Route: 048
  21. PREDONINE [Suspect]
     Indication: RHEUMATOID ARTHRITIS
     Route: 048
  22. RIMATIL [Concomitant]
     Route: 048
  23. RIMATIL [Concomitant]
     Indication: RHEUMATOID ARTHRITIS
     Dosage: DAILY DOSE: 1 TAB
     Route: 048
  24. RHEUMATREX [Concomitant]
     Route: 048
  25. PREDONINE [Concomitant]
     Route: 048
  26. PREDONINE [Concomitant]
     Route: 048
  27. PREDONINE [Concomitant]
     Route: 048

REACTIONS (5)
  - JAUNDICE [None]
  - NAUSEA [None]
  - PULMONARY MYCOSIS [None]
  - RASH GENERALISED [None]
  - VOMITING [None]
